FAERS Safety Report 23061664 (Version 1)
Quarter: 2023Q4

REPORT INFORMATION
  Report Type: Spontaneous
  Country: TW (occurrence: None)
  Receive Date: 20231013
  Receipt Date: 20231013
  Transmission Date: 20240109
  Serious: Yes (Other)
  Sender: FDA-Public Use
  Company Number: TW-ROCHE-3435940

PATIENT
  Sex: Female

DRUGS (26)
  1. RITUXIMAB [Suspect]
     Active Substance: RITUXIMAB
     Indication: Lymphoma transformation
     Dosage: UNKNOWN DOSE
     Route: 065
     Dates: start: 20180628, end: 20181123
  2. RITUXIMAB [Suspect]
     Active Substance: RITUXIMAB
     Dosage: UNKNOWN DOSE
     Route: 065
     Dates: start: 20210203, end: 20210609
  3. RITUXIMAB [Suspect]
     Active Substance: RITUXIMAB
     Dosage: UNKNOWN DOSEUNKNOWN DOSE
     Route: 065
     Dates: start: 20210809, end: 20210909
  4. RITUXIMAB [Suspect]
     Active Substance: RITUXIMAB
     Dosage: UNKNOWN DOSE
     Route: 065
     Dates: start: 20210909, end: 20210915
  5. RITUXIMAB [Suspect]
     Active Substance: RITUXIMAB
     Dosage: UNKNOWN DOSE
     Route: 065
     Dates: start: 20211005, end: 20211008
  6. RITUXIMAB [Suspect]
     Active Substance: RITUXIMAB
     Dosage: UNKNOWN DOSE
     Route: 065
     Dates: start: 20230221, end: 20230329
  7. RITUXIMAB [Suspect]
     Active Substance: RITUXIMAB
     Dosage: UNKNOWN DOSE
     Route: 065
     Dates: start: 20230502, end: 20230609
  8. CYCLOPHOSPHAMIDE [Suspect]
     Active Substance: CYCLOPHOSPHAMIDE
     Indication: Lymphoma transformation
     Route: 065
     Dates: start: 20180628, end: 20181123
  9. CYCLOPHOSPHAMIDE [Suspect]
     Active Substance: CYCLOPHOSPHAMIDE
     Dosage: UNKNOWN DOSE
     Route: 065
     Dates: start: 20210203, end: 20210609
  10. VINCRISTINE [Suspect]
     Active Substance: VINCRISTINE
     Indication: Lymphoma transformation
     Dosage: UNKNOWN DOSE
     Route: 065
     Dates: start: 20180628, end: 20181123
  11. VINCRISTINE [Suspect]
     Active Substance: VINCRISTINE
     Dosage: UNKNOWN DOSEUNKNOWN DOSE
     Route: 065
     Dates: start: 20210203, end: 20210609
  12. PREDNISONE [Suspect]
     Active Substance: PREDNISONE
     Indication: Lymphoma transformation
     Dosage: UNKNOWN DOSE
     Route: 065
     Dates: start: 20180628, end: 20181123
  13. PREDNISONE [Suspect]
     Active Substance: PREDNISONE
     Dosage: UNKNOWN DOSE
     Route: 065
     Dates: start: 20210203, end: 20210609
  14. DOXORUBICIN [Suspect]
     Active Substance: DOXORUBICIN
     Indication: Lymphoma transformation
     Dosage: UNKNOWN DOSE
     Route: 065
     Dates: start: 20210203, end: 20210609
  15. DEXAMETHASONE [Suspect]
     Active Substance: DEXAMETHASONE
     Indication: Lymphoma transformation
     Dosage: UNKNOWN DOSE
     Route: 065
     Dates: start: 20210809, end: 20210909
  16. DEXAMETHASONE [Suspect]
     Active Substance: DEXAMETHASONE
     Dosage: UNKNOWN DOSE
     Route: 065
     Dates: start: 20211005, end: 20211008
  17. CISPLATIN [Suspect]
     Active Substance: CISPLATIN
     Indication: Lymphoma transformation
     Dosage: UNKNOWN DOSE
     Route: 065
     Dates: start: 20210809, end: 20210909
  18. CISPLATIN [Suspect]
     Active Substance: CISPLATIN
     Dosage: UNKNOWN DOSE
     Route: 065
     Dates: start: 20211005, end: 20211008
  19. CYTARABINE [Suspect]
     Active Substance: CYTARABINE
     Indication: Lymphoma transformation
     Dosage: UNKNOWN DOSE
     Route: 065
     Dates: start: 20210809, end: 20210909
  20. IFOSFAMIDE [Suspect]
     Active Substance: IFOSFAMIDE
     Indication: Lymphoma transformation
     Route: 065
     Dates: start: 20210909, end: 20210915
  21. ETOPOSIDE [Suspect]
     Active Substance: ETOPOSIDE
     Indication: Lymphoma transformation
     Route: 065
     Dates: start: 20210909, end: 20210915
  22. CARBOPLATIN [Suspect]
     Active Substance: CARBOPLATIN
     Indication: Lymphoma transformation
     Route: 065
     Dates: start: 20210909, end: 20210915
  23. GEMCITABINE [Suspect]
     Active Substance: GEMCITABINE
     Indication: Lymphoma transformation
     Route: 065
     Dates: start: 20211005, end: 20211008
  24. POLIVY [Suspect]
     Active Substance: POLATUZUMAB VEDOTIN-PIIQ
     Indication: Lymphoma transformation
     Route: 065
     Dates: start: 20230221, end: 20230329
  25. BENDAMUSTINE [Suspect]
     Active Substance: BENDAMUSTINE
     Indication: Lymphoma transformation
     Route: 065
     Dates: start: 20230221, end: 20230329
  26. BENDAMUSTINE [Suspect]
     Active Substance: BENDAMUSTINE
     Route: 065
     Dates: start: 20230502, end: 20230609

REACTIONS (3)
  - Disease progression [Unknown]
  - Lymphoma [Unknown]
  - Off label use [Unknown]
